FAERS Safety Report 6716977-5 (Version None)
Quarter: 2010Q2

REPORT INFORMATION
  Report Type: 
  Country: None (occurrence: None)
  Receive Date: 20100506
  Receipt Date: 20100506
  Transmission Date: 20101027
  Serious: Yes (Other)
  Sender: FDA-Public Use
  Company Number: None

PATIENT
  Sex: Male
  Weight: 106.5953 kg

DRUGS (7)
  1. ADVAIR DISKUS 250/50 [Suspect]
     Indication: HYPERSENSITIVITY
     Dosage: 1 INHALATION TWICE DAILY MOUTH
     Dates: start: 20100217, end: 20100302
  2. DUONEB VIA NEBULIZER [Concomitant]
  3. SINGULAIR [Concomitant]
  4. FLOMAX [Concomitant]
  5. LASIX [Concomitant]
  6. POTASSIUM CHLORIDE [Concomitant]
  7. LOVASTATIN [Concomitant]

REACTIONS (2)
  - RASH GENERALISED [None]
  - URTICARIA [None]
